FAERS Safety Report 10191360 (Version 1)
Quarter: 2014Q2

REPORT INFORMATION
  Report Type: Spontaneous
  Country: IT (occurrence: IT)
  Receive Date: 20140523
  Receipt Date: 20140523
  Transmission Date: 20141212
  Serious: Yes (Other)
  Sender: FDA-Public Use
  Company Number: IT-TEVA-482591ISR

PATIENT
  Age: 42 Year
  Sex: Female

DRUGS (2)
  1. OXALIPLATIN [Suspect]
     Indication: OVARIAN CANCER METASTATIC
     Dosage: 120 MG CYCLICAL
     Route: 042
     Dates: start: 20140128, end: 20140512
  2. ENDOXAN BAXTER - BAXTER S.P.A. [Suspect]
     Indication: OVARIAN CANCER METASTATIC
     Dosage: 1020 MG CYCLICAL
     Route: 042
     Dates: start: 20140128, end: 20140512

REACTIONS (4)
  - Loss of consciousness [Recovered/Resolved]
  - Nausea [Recovered/Resolved]
  - Tremor [Recovered/Resolved]
  - Vomiting [Recovered/Resolved]
